FAERS Safety Report 5196623-5 (Version None)
Quarter: 2007Q1

REPORT INFORMATION
  Report Type: 
  Country: None (occurrence: None)
  Receive Date: 20070103
  Receipt Date: 20061222
  Transmission Date: 20070707
  Serious: Yes (Disabling)
  Sender: FDA-Public Use
  Company Number: JP-ROXANE LABORATORIES, INC-2006-BP-14677NB

PATIENT
  Sex: Female

DRUGS (9)
  1. BUSCOPAN [Suspect]
     Indication: ABDOMINAL PAIN
     Route: 048
     Dates: start: 20050927, end: 20061012
  2. THEO-DUR [Suspect]
     Route: 048
     Dates: start: 20051011, end: 20051012
  3. DIAZEPAM [Suspect]
     Route: 048
     Dates: start: 20050719
  4. DANTRIUM [Concomitant]
     Route: 048
     Dates: start: 20050719
  5. RINPRAL [Concomitant]
     Route: 048
     Dates: start: 20050719
  6. LAXOBERON [Concomitant]
     Route: 048
     Dates: start: 20050816
  7. HOKUNALIN:TAPE (TULOBUTEROL) [Concomitant]
     Route: 062
     Dates: start: 20051018
  8. RINGEREAZE [Concomitant]
     Route: 048
     Dates: start: 20050719
  9. MUCOSTA [Concomitant]
     Route: 048
     Dates: start: 20050719

REACTIONS (1)
  - ANGLE CLOSURE GLAUCOMA [None]
